FAERS Safety Report 8282630-2 (Version None)
Quarter: 2012Q2

REPORT INFORMATION
  Report Type: 
  Country: None (occurrence: None)
  Receive Date: 20120411
  Receipt Date: 20120406
  Transmission Date: 20120825
  Serious: Yes (Hospitalization, Other)
  Sender: FDA-Public Use
  Company Number: 2010SP031284

PATIENT
  Age: 32 Year
  Sex: Female
  Weight: 79.3795 kg

DRUGS (3)
  1. NUVARING [Suspect]
     Indication: ANALGESIC THERAPY
     Dosage: VAG
     Route: 067
     Dates: start: 20080528, end: 20080601
  2. NUVARING [Suspect]
     Indication: CONTRACEPTION
     Dosage: VAG
     Route: 067
     Dates: start: 20080528, end: 20080601
  3. LUPRON [Concomitant]

REACTIONS (39)
  - PLEURISY [None]
  - PNEUMONIA [None]
  - SCAR [None]
  - OEDEMA PERIPHERAL [None]
  - ANTINUCLEAR ANTIBODY POSITIVE [None]
  - BRONCHITIS [None]
  - CHRONIC OBSTRUCTIVE PULMONARY DISEASE [None]
  - PULMONARY EMBOLISM [None]
  - PLATELET COUNT INCREASED [None]
  - BACK PAIN [None]
  - MUSCULOSKELETAL STIFFNESS [None]
  - ANXIETY [None]
  - HEADACHE [None]
  - STRESS [None]
  - HAEMOPTYSIS [None]
  - INTERNATIONAL NORMALISED RATIO INCREASED [None]
  - FATIGUE [None]
  - POST PROCEDURAL CONSTIPATION [None]
  - DYSPEPSIA [None]
  - CHEST DISCOMFORT [None]
  - SOMNOLENCE [None]
  - RAYNAUD'S PHENOMENON [None]
  - CONVULSION [None]
  - DRUG INTOLERANCE [None]
  - INCISION SITE CELLULITIS [None]
  - HYPOAESTHESIA [None]
  - ANAEMIA [None]
  - COMPLEX REGIONAL PAIN SYNDROME [None]
  - COAGULOPATHY [None]
  - RESPIRATORY FAILURE [None]
  - PRESYNCOPE [None]
  - PULMONARY INFARCTION [None]
  - TACHYCARDIA [None]
  - POST-TRAUMATIC STRESS DISORDER [None]
  - FIBROMYALGIA [None]
  - ARTHRALGIA [None]
  - SYSTEMIC LUPUS ERYTHEMATOSUS [None]
  - DIZZINESS [None]
  - TRICUSPID VALVE INCOMPETENCE [None]
